FAERS Safety Report 17581179 (Version 5)
Quarter: 2022Q1

REPORT INFORMATION
  Report Type: Spontaneous
  Country: US (occurrence: US)
  Receive Date: 20200325
  Receipt Date: 20220121
  Transmission Date: 20220424
  Serious: No
  Sender: FDA-Public Use
  Company Number: US-BIOGEN-2017BI00360327

PATIENT
  Sex: Female

DRUGS (6)
  1. AMPYRA [Suspect]
     Active Substance: DALFAMPRIDINE
     Indication: Gait disturbance
     Dosage: UNK
     Route: 065
  2. AMPYRA [Suspect]
     Active Substance: DALFAMPRIDINE
     Dosage: UNK
     Route: 065
  3. AVONEX PEN [Suspect]
     Active Substance: INTERFERON BETA-1A
     Indication: Multiple sclerosis
     Dosage: 30 MICROGRAM, WEEKLY
     Route: 030
     Dates: start: 1995, end: 2011
  4. AVONEX [Suspect]
     Active Substance: INTERFERON BETA-1A
     Indication: Multiple sclerosis
     Dosage: UNK
     Route: 065
     Dates: start: 19970508
  5. TYSABRI [Suspect]
     Active Substance: NATALIZUMAB
     Indication: Multiple sclerosis
     Dosage: 300 MILLIGRAM, MONTHLY
     Route: 042
     Dates: start: 20110304
  6. TYSABRI [Suspect]
     Active Substance: NATALIZUMAB
     Dosage: UNK
     Route: 065
     Dates: start: 2014

REACTIONS (7)
  - Muscle spasms [Not Recovered/Not Resolved]
  - Drooling [Unknown]
  - Impaired self-care [Unknown]
  - Motor dysfunction [Unknown]
  - Aphasia [Unknown]
  - Demyelination [Unknown]
  - Therapeutic response shortened [Not Recovered/Not Resolved]
